FAERS Safety Report 4324452-0 (Version None)
Quarter: 2004Q1

REPORT INFORMATION
  Report Type: 
  Country: None (occurrence: None)
  Receive Date: 20040326
  Receipt Date: 20040216
  Transmission Date: 20041129
  Serious: No
  Sender: FDA-Public Use
  Company Number: US-GLAXOSMITHKLINE-A0498326A

PATIENT
  Sex: Female

DRUGS (5)
  1. ADVAIR DISKUS 100/50 [Suspect]
     Dosage: 1PUFF TWICE PER DAY
     Route: 055
  2. SEREVENT [Suspect]
     Dosage: 1PUFF TWICE PER DAY
     Route: 055
     Dates: start: 20031101, end: 20040201
  3. ATROVENT [Concomitant]
  4. FLOVENT [Concomitant]
  5. ALBUTEROL [Concomitant]

REACTIONS (1)
  - PALPITATIONS [None]
